FAERS Safety Report 7610780-X (Version None)
Quarter: 2011Q3

REPORT INFORMATION
  Report Type: 
  Country: None (occurrence: None)
  Receive Date: 20110715
  Receipt Date: 20110712
  Transmission Date: 20111222
  Serious: Yes (Death, Hospitalization, Other)
  Sender: FDA-Public Use
  Company Number: PHHY2011BR61925

PATIENT
  Sex: Male

DRUGS (1)
  1. EXELON [Suspect]
     Indication: DEMENTIA ALZHEIMER'S TYPE
     Dosage: 2 DF OR 6 MG DAILY
     Route: 048

REACTIONS (5)
  - DYSPNOEA [None]
  - GASTRIC HAEMORRHAGE [None]
  - PNEUMONIA [None]
  - RESPIRATORY FAILURE [None]
  - PULMONARY FIBROSIS [None]
